FAERS Safety Report 7516045-9 (Version None)
Quarter: 2011Q2

REPORT INFORMATION
  Report Type: 
  Country: None (occurrence: None)
  Receive Date: 20110601
  Receipt Date: 20110523
  Transmission Date: 20111010
  Serious: Yes (Hospitalization)
  Sender: FDA-Public Use
  Company Number: US-AMGEN-USASP2011026539

PATIENT
  Age: 60 Year
  Sex: Female

DRUGS (2)
  1. ENBREL [Suspect]
     Indication: RHEUMATOID ARTHRITIS
     Dosage: 50 MG, QWK
     Dates: start: 20101001
  2. TREXALL [Concomitant]
     Dosage: 1 MG, QWK
     Dates: start: 20080101

REACTIONS (6)
  - TRANSIENT ISCHAEMIC ATTACK [None]
  - CONTUSION [None]
  - FALL [None]
  - JOINT DESTRUCTION [None]
  - PAIN [None]
  - ARTHRALGIA [None]
